FAERS Safety Report 19765585 (Version 1)
Quarter: 2021Q3

REPORT INFORMATION
  Report Type: Report from Study
  Country: US (occurrence: US)
  Receive Date: 20210831
  Receipt Date: 20210831
  Transmission Date: 20211014
  Serious: Yes (Hospitalization)
  Sender: FDA-Public Use
  Company Number: US-INSMED, INC.-2021-08861-US

PATIENT
  Age: 72 Year
  Sex: Female

DRUGS (2)
  1. ARIKAYCE [Suspect]
     Active Substance: AMIKACIN
     Indication: BRONCHIECTASIS
  2. ARIKAYCE [Suspect]
     Active Substance: AMIKACIN
     Indication: MYCOBACTERIUM AVIUM COMPLEX INFECTION
     Dosage: 590 MILLIGRAM, QD
     Route: 055
     Dates: start: 20210626, end: 20210803

REACTIONS (8)
  - Dysphonia [Not Recovered/Not Resolved]
  - Hospitalisation [Unknown]
  - Cough [Recovering/Resolving]
  - Pneumonia [Recovered/Resolved]
  - Faeces soft [Not Recovered/Not Resolved]
  - Throat irritation [Unknown]
  - Diarrhoea [Not Recovered/Not Resolved]
  - Malaise [Unknown]

NARRATIVE: CASE EVENT DATE: 2021
